FAERS Safety Report 18839400 (Version 2)
Quarter: 2021Q1

REPORT INFORMATION
  Report Type: Report from Study
  Country: US (occurrence: BR)
  Receive Date: 20210203
  Receipt Date: 20210303
  Transmission Date: 20210419
  Serious: Yes (Death, Hospitalization)
  Sender: FDA-Public Use
  Company Number: BR-ASTELLAS-2021US004126

PATIENT
  Age: 79 Year
  Sex: Male
  Weight: 65 kg

DRUGS (9)
  1. DIPYRONE [Concomitant]
     Active Substance: DIPYRONE
     Indication: ARTHRALGIA
     Route: 048
     Dates: start: 20200925
  2. SIMVASTATIN. [Concomitant]
     Active Substance: SIMVASTATIN
     Indication: ISCHAEMIC STROKE
     Route: 048
     Dates: start: 200202
  3. ENZALUTAMIDE [Suspect]
     Active Substance: ENZALUTAMIDE
     Indication: HORMONE-REFRACTORY PROSTATE CANCER
     Dosage: 160 MG, ONCE A DAY
     Route: 048
     Dates: start: 20200903, end: 20210119
  4. BUCLIZINE HYDROCHLORIDE [Concomitant]
     Active Substance: BUCLIZINE HYDROCHLORIDE
     Indication: DECREASED APPETITE
     Dosage: 25 MG, TWICE A DAY
     Route: 048
     Dates: start: 20201029
  5. HYDROCHLOROTHIAZIDE. [Concomitant]
     Active Substance: HYDROCHLOROTHIAZIDE
     Indication: HYPERTENSION
     Route: 048
     Dates: start: 20200917
  6. LOSARTAN. [Concomitant]
     Active Substance: LOSARTAN
     Indication: HYPERTENSION
     Dosage: 50 MG, TWICE A DAY
     Route: 048
     Dates: start: 20200917
  7. NIFEDIPINE. [Concomitant]
     Active Substance: NIFEDIPINE
     Indication: HYPERTENSION
     Dosage: 20 MG, THREE TIMES A DAY
     Route: 048
     Dates: start: 20200917
  8. ACETYLSALICYLIC ACID [Concomitant]
     Active Substance: ASPIRIN
     Indication: ISCHAEMIC STROKE
     Route: 048
     Dates: start: 200202
  9. ATENOLOL. [Concomitant]
     Active Substance: ATENOLOL
     Indication: HYPERTENSION
     Dosage: 25 MG, TWICE A DAY
     Route: 048
     Dates: start: 20200917

REACTIONS (2)
  - Vomiting [Fatal]
  - Pyrexia [Fatal]

NARRATIVE: CASE EVENT DATE: 20210124
